FAERS Safety Report 9259466 (Version 1)
Quarter: 2013Q2

REPORT INFORMATION
  Report Type: Spontaneous
  Country: SE (occurrence: SE)
  Receive Date: 20130428
  Receipt Date: 20130428
  Transmission Date: 20140414
  Serious: Yes (Death)
  Sender: FDA-Public Use
  Company Number: SE-ROXANE LABORATORIES, INC.-2013-RO-00598RO

PATIENT
  Age: 25 Year
  Sex: Male

DRUGS (4)
  1. METHADONE [Suspect]
  2. BUPRENORPHINE HYDROCHLORIDE [Suspect]
  3. AMPHETAMINE [Suspect]
  4. METHAMPHETAMINE [Suspect]

REACTIONS (1)
  - Accidental overdose [Fatal]
